FAERS Safety Report 7990660-0 (Version None)
Quarter: 2011Q4

REPORT INFORMATION
  Report Type: 
  Country: None (occurrence: None)
  Receive Date: 20111219
  Receipt Date: 20111206
  Transmission Date: 20120403
  Serious: Yes (Life-Threatening, Other)
  Sender: FDA-Public Use
  Company Number: JP-TEVA-313959ISR

PATIENT
  Age: 23 Year
  Sex: Female

DRUGS (3)
  1. ETOPOSIDE [Suspect]
     Indication: YOLK SAC TUMOUR SITE UNSPECIFIED
     Dosage: DAYS 1-5
  2. CISPLATIN [Suspect]
     Indication: YOLK SAC TUMOUR SITE UNSPECIFIED
     Dosage: DAYS 1-5
  3. BLEOMYCIN SULFATE [Suspect]
     Indication: YOLK SAC TUMOUR SITE UNSPECIFIED
     Dosage: DAYS 2,9,16

REACTIONS (6)
  - LEFT VENTRICULAR DYSFUNCTION [None]
  - TUMOUR LYSIS SYNDROME [None]
  - FEBRILE NEUTROPENIA [None]
  - RENAL FAILURE ACUTE [None]
  - PULMONARY FIBROSIS [None]
  - HYDRONEPHROSIS [None]
